FAERS Safety Report 4292751-7 (Version None)
Quarter: 2004Q1

REPORT INFORMATION
  Report Type: 
  Country: None (occurrence: None)
  Receive Date: 20040210
  Receipt Date: 20040204
  Transmission Date: 20041129
  Serious: Yes (Life-Threatening)
  Sender: FDA-Public Use
  Company Number: 2004PK00233

PATIENT
  Age: 48 Year
  Sex: Female

DRUGS (3)
  1. ESOMEPRAZOLE [Suspect]
     Indication: PROPHYLAXIS AGAINST GASTROINTESTINAL ULCER
     Dosage: 40 MG DAILY PO
     Route: 048
     Dates: end: 20031101
  2. OMEPRAZOLE [Suspect]
     Indication: PROPHYLAXIS AGAINST GASTROINTESTINAL ULCER
     Dosage: 20 MG DAILY PO
     Route: 048
     Dates: end: 20031101
  3. PREDNISOLONE [Concomitant]

REACTIONS (1)
  - HEPATITIS TOXIC [None]
